FAERS Safety Report 5370117-6 (Version None)
Quarter: 2007Q2

REPORT INFORMATION
  Report Type: 
  Country: None (occurrence: None)
  Receive Date: 20070626
  Receipt Date: 20070614
  Transmission Date: 20071010
  Serious: Yes (Death)
  Sender: FDA-Public Use
  Company Number: SK-ELI_LILLY_AND_COMPANY-SK200706003677

PATIENT
  Age: 51 Year
  Sex: Male
  Weight: 60 kg

DRUGS (5)
  1. HUMALOG [Suspect]
     Indication: DIABETES MELLITUS INSULIN-DEPENDENT
     Dosage: UNK IU, DAILY (1/D)
     Route: 058
     Dates: start: 20060101
  2. HUMULIN N [Suspect]
     Indication: DIABETES MELLITUS INSULIN-DEPENDENT
     Dosage: UNK IU, DAILY (1/D)
     Route: 058
     Dates: start: 20060101
  3. TRAMADOL HCL [Concomitant]
     Dosage: 300 MG, DAILY (1/D)
     Route: 048
  4. FUROSEMIDE [Concomitant]
     Dosage: 40 MG, DAILY (1/D)
     Route: 048
  5. ETHAMSYLATE [Concomitant]
     Dosage: 750 MG, DAILY (1/D)
     Route: 048

REACTIONS (3)
  - COMA HEPATIC [None]
  - GASTROINTESTINAL HAEMORRHAGE [None]
  - PANCREATIC CARCINOMA [None]
